FAERS Safety Report 20151775 (Version 1)
Quarter: 2021Q4

REPORT INFORMATION
  Report Type: Spontaneous
  Country: US (occurrence: None)
  Receive Date: 20211204
  Receipt Date: 20211204
  Transmission Date: 20220303
  Serious: No
  Sender: FDA-Public Use
  Company Number: None

PATIENT
  Age: 65 Year
  Sex: Female
  Weight: 72 kg

DRUGS (1)
  1. SODIUM SULFATE, POTASSIUM SULFATE, MAGNESIUM SULFATE, POLYETHYLENE GLY [Suspect]
     Active Substance: MAGNESIUM SULFATE, UNSPECIFIED\POLYETHYLENE GLYCOL 3350\POTASSIUM CHLORIDE\POTASSIUM SULFATE\SODIUM
     Indication: Colonoscopy
     Dosage: OTHER QUANTITY : 12 TABLET(S);?
     Route: 048
     Dates: start: 20211202, end: 20211202

REACTIONS (6)
  - Pruritus [None]
  - Pain [None]
  - Urticaria [None]
  - Headache [None]
  - Muscle tightness [None]
  - Neck pain [None]

NARRATIVE: CASE EVENT DATE: 20211202
